FAERS Safety Report 10015837 (Version 2)
Quarter: 2014Q1

REPORT INFORMATION
  Report Type: Spontaneous
  Country: US (occurrence: US)
  Receive Date: 20140317
  Receipt Date: 20140319
  Transmission Date: 20141002
  Serious: Yes (Other)
  Sender: FDA-Public Use
  Company Number: US-GLAXOSMITHKLINE-A1065090A

PATIENT
  Age: 58 Year
  Sex: Female

DRUGS (1)
  1. VOTRIENT [Suspect]
     Indication: NEOPLASM MALIGNANT
     Dosage: 800MG PER DAY
     Route: 065
     Dates: start: 20140227

REACTIONS (10)
  - Radiotherapy [Unknown]
  - Diarrhoea [Unknown]
  - Blood pressure increased [Unknown]
  - Headache [Unknown]
  - Abdominal pain [Unknown]
  - Nausea [Unknown]
  - Blister [Unknown]
  - Stomatitis [Unknown]
  - Rash macular [Unknown]
  - Rash macular [Unknown]
